FAERS Safety Report 8082187-5 (Version None)
Quarter: 2012Q1

REPORT INFORMATION
  Report Type: 
  Country: None (occurrence: None)
  Receive Date: 20120127
  Receipt Date: 20110223
  Transmission Date: 20120608
  Serious: No
  Sender: FDA-Public Use
  Company Number: US-ABBOTT-11P-163-0701830-00

PATIENT
  Sex: Female

DRUGS (5)
  1. GABAPENTIN [Concomitant]
     Indication: FIBROMYALGIA
  2. TRAZODONE HCL [Concomitant]
     Indication: INSOMNIA
     Dosage: 1 IN 1 D AT BEDTIME
  3. HUMIRA [Suspect]
     Indication: PSORIASIS
     Dosage: 80 MG LOADING DOSE
     Dates: start: 20110131, end: 20110131
  4. PERCOCET [Concomitant]
     Indication: OSTEOARTHRITIS
     Dosage: 5/25 MG PRN
  5. CLOBETASOLE [Concomitant]
     Indication: PSORIASIS
     Route: 061

REACTIONS (4)
  - INJECTION SITE PAIN [None]
  - INJECTION SITE SWELLING [None]
  - INJECTION SITE HAEMORRHAGE [None]
  - DEVICE MALFUNCTION [None]
